FAERS Safety Report 18193937 (Version 1)
Quarter: 2020Q3

REPORT INFORMATION
  Report Type: Spontaneous
  Country: US (occurrence: US)
  Receive Date: 20200825
  Receipt Date: 20200825
  Transmission Date: 20201103
  Serious: No
  Sender: FDA-Public Use
  Company Number: US-JNJFOC-20200823315

PATIENT
  Age: 8 Decade
  Sex: Male
  Weight: 88.53 kg

DRUGS (1)
  1. MENS ROGAINE EXTRA STRENGTH [Suspect]
     Active Substance: MINOXIDIL
     Indication: ALOPECIA
     Dosage: DOSE:RECOMMENDED
     Route: 061
     Dates: start: 2019, end: 20200813

REACTIONS (2)
  - Seborrhoea [Recovering/Resolving]
  - Application site irritation [Recovering/Resolving]

NARRATIVE: CASE EVENT DATE: 2020
